FAERS Safety Report 23333274 (Version 1)
Quarter: 2023Q4

REPORT INFORMATION
  Report Type: Spontaneous
  Country: IT (occurrence: IT)
  Receive Date: 20231222
  Receipt Date: 20231222
  Transmission Date: 20240110
  Serious: Yes (Hospitalization)
  Sender: FDA-Public Use
  Company Number: None

PATIENT
  Age: 59 Year
  Sex: Male

DRUGS (3)
  1. METFORMIN HYDROCHLORIDE [Suspect]
     Active Substance: METFORMIN HYDROCHLORIDE
     Indication: Drug abuse
     Dosage: 1000 MG
     Route: 048
     Dates: start: 20231006, end: 20231006
  2. EZETIMIBE\ROSUVASTATIN CALCIUM [Suspect]
     Active Substance: EZETIMIBE\ROSUVASTATIN CALCIUM
     Indication: Drug abuse
     Dosage: 5 MG/10 MG
     Route: 048
     Dates: start: 20231006, end: 20231006
  3. ASPIRIN [Suspect]
     Active Substance: ASPIRIN
     Indication: Drug abuse
     Dosage: 100 MG
     Route: 048
     Dates: start: 20231006, end: 20231006

REACTIONS (3)
  - Dyspnoea [Recovered/Resolved]
  - Toxicity to various agents [Recovered/Resolved]
  - Drug abuse [Recovered/Resolved]

NARRATIVE: CASE EVENT DATE: 20231006
